FAERS Safety Report 5746484-8 (Version None)
Quarter: 2008Q2

REPORT INFORMATION
  Report Type: 
  Country: None (occurrence: None)
  Receive Date: 20080522
  Receipt Date: 20080507
  Transmission Date: 20081010
  Serious: Yes (Other)
  Sender: FDA-Public Use
  Company Number: US-ASTRAZENECA-2008AC01279

PATIENT

DRUGS (2)
  1. GEFITINIB [Suspect]
     Indication: NON-SMALL CELL LUNG CANCER
     Route: 048
  2. DOCETAXEL [Suspect]
     Indication: NON-SMALL CELL LUNG CANCER
     Route: 042

REACTIONS (8)
  - CHRONIC OBSTRUCTIVE PULMONARY DISEASE [None]
  - CYSTITIS INTERSTITIAL [None]
  - DYSPHAGIA [None]
  - DYSPNOEA [None]
  - GASTRITIS [None]
  - MUSCULAR WEAKNESS [None]
  - OESOPHAGITIS [None]
  - PNEUMONIA [None]
